FAERS Safety Report 6487199-0 (Version None)
Quarter: 2009Q4

REPORT INFORMATION
  Report Type: 
  Country: None (occurrence: None)
  Receive Date: 20091210
  Receipt Date: 20091012
  Transmission Date: 20100525
  Serious: No
  Sender: FDA-Public Use
  Company Number: US-BAYER-200915599BCC

PATIENT
  Age: 80 Year
  Sex: Female

DRUGS (6)
  1. ALEVE [Suspect]
     Indication: ARTHRALGIA
     Route: 048
     Dates: start: 20090901
  2. METFORMIN HCL [Concomitant]
     Route: 065
  3. LIPITOR [Concomitant]
     Route: 065
  4. BAYER REGULAR ASPIRIN [Concomitant]
     Route: 065
  5. LISINOPRIL [Concomitant]
     Route: 065
  6. UNKNOWN PAIN PILL [Concomitant]
     Indication: PAIN
     Route: 048

REACTIONS (1)
  - PAIN IN EXTREMITY [None]
